FAERS Safety Report 5008265-2 (Version None)
Quarter: 2006Q2

REPORT INFORMATION
  Report Type: 
  Country: None (occurrence: None)
  Receive Date: 20060523
  Receipt Date: 20050929
  Transmission Date: 20061013
  Serious: Yes (Other)
  Sender: FDA-Public Use
  Company Number: PHEH2005US10847

PATIENT
  Age: 31 Year
  Sex: Female

DRUGS (1)
  1. ELIDEL [Suspect]
     Indication: SKIN EXFOLIATION
     Dosage: UNK, QD
     Route: 061
     Dates: start: 20050701, end: 20050918

REACTIONS (4)
  - ABORTION SPONTANEOUS [None]
  - DRUG EXPOSURE DURING PREGNANCY [None]
  - UTERINE SPASM [None]
  - VAGINAL HAEMORRHAGE [None]
